FAERS Safety Report 19045576 (Version 1)
Quarter: 2021Q1

REPORT INFORMATION
  Report Type: Spontaneous
  Country: JP (occurrence: JP)
  Receive Date: 20210322
  Receipt Date: 20210322
  Transmission Date: 20210420
  Serious: Yes (Other)
  Sender: FDA-Public Use
  Company Number: JP-SEATTLE GENETICS-2021SGN01582

PATIENT
  Sex: Female

DRUGS (1)
  1. ADCETRIS [Suspect]
     Active Substance: BRENTUXIMAB VEDOTIN
     Indication: PERIPHERAL T-CELL LYMPHOMA UNSPECIFIED
     Dosage: UNK
     Route: 042
     Dates: start: 202008

REACTIONS (4)
  - Pulmonary alveolar haemorrhage [Unknown]
  - Pyrexia [Unknown]
  - Lung opacity [Unknown]
  - Lung disorder [Unknown]

NARRATIVE: CASE EVENT DATE: 202102
